FAERS Safety Report 10193410 (Version 1)
Quarter: 2014Q2

REPORT INFORMATION
  Report Type: Spontaneous
  Country: US (occurrence: US)
  Receive Date: 20140524
  Receipt Date: 20140524
  Transmission Date: 20141212
  Serious: No
  Sender: FDA-Public Use
  Company Number: US-SA-2013SA118225

PATIENT
  Age: 58 Year
  Sex: Male

DRUGS (5)
  1. LANTUS SOLOSTAR [Suspect]
     Indication: TYPE 1 DIABETES MELLITUS
     Dosage: PRODUCT STARTED FROM ONE AND HALF YEARS AGO. DOSE:30 UNIT(S)
     Route: 058
  2. LANTUS SOLOSTAR [Suspect]
     Indication: TYPE 1 DIABETES MELLITUS
     Dosage: PRODUCT STARTED FROM ONE AND HALF YEARS AGO. DOSE:30 UNIT(S)
     Route: 058
  3. SOLOSTAR [Concomitant]
     Indication: TYPE 1 DIABETES MELLITUS
     Dosage: PRODUCT STARTED FROM ONE AND HALF YEARS AGO.
  4. SOLOSTAR [Concomitant]
     Indication: TYPE 1 DIABETES MELLITUS
     Dosage: PRODUCT STARTED FROM ONE AND HALF YEARS AGO.
  5. NOVOLOG [Concomitant]

REACTIONS (2)
  - Hypoacusis [Unknown]
  - Weight increased [Unknown]
